APPROVED DRUG PRODUCT: ISOSORBIDE DINITRATE
Active Ingredient: ISOSORBIDE DINITRATE
Strength: 10MG
Dosage Form/Route: TABLET;ORAL
Application: A086032 | Product #001
Applicant: ANI PHARMACEUTICALS INC
Approved: Jan 7, 1988 | RLD: No | RS: No | Type: DISCN